FAERS Safety Report 7937000-0 (Version None)
Quarter: 2011Q4

REPORT INFORMATION
  Report Type: 
  Country: None (occurrence: None)
  Receive Date: 20111123
  Receipt Date: 20111115
  Transmission Date: 20120403
  Serious: Yes (Death, Hospitalization, Other)
  Sender: FDA-Public Use
  Company Number: US-BAXTER-2011BH031658

PATIENT
  Sex: Female

DRUGS (1)
  1. DIANEAL [Suspect]
     Indication: PERITONEAL DIALYSIS
     Route: 033
     Dates: start: 20110501, end: 20110919

REACTIONS (8)
  - GASTROINTESTINAL DISORDER [None]
  - VOMITING [None]
  - CLOSTRIDIAL INFECTION [None]
  - ISCHAEMIC GASTRITIS [None]
  - SEPSIS [None]
  - PERIPHERAL VASCULAR DISORDER [None]
  - FAILURE TO THRIVE [None]
  - DIARRHOEA [None]
